FAERS Safety Report 17960438 (Version 1)
Quarter: 2020Q2

REPORT INFORMATION
  Report Type: Spontaneous
  Country: US (occurrence: US)
  Receive Date: 20200630
  Receipt Date: 20200630
  Transmission Date: 20200714
  Serious: No
  Sender: FDA-Public Use
  Company Number: US-BIOGEN-2020BI00850359

PATIENT
  Sex: Female

DRUGS (2)
  1. TECFIDERA [Suspect]
     Active Substance: DIMETHYL FUMARATE
     Dosage: START DATE: 15-MAR-2020
     Route: 048
     Dates: end: 202003
  2. TECFIDERA [Suspect]
     Active Substance: DIMETHYL FUMARATE
     Indication: MULTIPLE SCLEROSIS
     Route: 048
     Dates: start: 2019, end: 2019

REACTIONS (6)
  - Burning sensation [Unknown]
  - Scratch [Unknown]
  - Urticaria [Unknown]
  - Transient ischaemic attack [Unknown]
  - Depression [Recovered/Resolved]
  - Amnesia [Unknown]
